FAERS Safety Report 7363918-6 (Version None)
Quarter: 2011Q1

REPORT INFORMATION
  Report Type: 
  Country: None (occurrence: None)
  Receive Date: 20110321
  Receipt Date: 20110114
  Transmission Date: 20110831
  Serious: No
  Sender: FDA-Public Use
  Company Number: US-BAYER-2011-005522

PATIENT
  Sex: Female
  Weight: 61 kg

DRUGS (4)
  1. ALEVE (CAPLET) [Suspect]
     Indication: ARTHRALGIA
     Dosage: BOTTLE COUNT 130CT
     Dates: start: 20110113
  2. NORVASC [Concomitant]
  3. LIPITOR [Concomitant]
  4. ATENOLOL [Concomitant]

REACTIONS (1)
  - ARTHRALGIA [None]
